FAERS Safety Report 16903972 (Version 2)
Quarter: 2020Q1

REPORT INFORMATION
  Report Type: Report from Study
  Country: None (occurrence: US)
  Receive Date: 20191010
  Receipt Date: 20200107
  Transmission Date: 20200409
  Serious: Yes (Other)
  Sender: FDA-Public Use
  Company Number: US-ABBVIE-19K-163-2838316-00

PATIENT
  Age: 32 Year
  Sex: Male
  Weight: 131.66 kg

DRUGS (1)
  1. HUMIRA [Suspect]
     Active Substance: ADALIMUMAB
     Indication: HIDRADENITIS
     Route: 058
     Dates: end: 201909

REACTIONS (9)
  - Post procedural haematoma [Recovered/Resolved]
  - Post procedural swelling [Unknown]
  - Infected cyst [Recovered/Resolved]
  - Vasectomy [Recovered/Resolved]
  - Neck injury [Unknown]
  - Skin induration [Recovering/Resolving]
  - Skin swelling [Recovering/Resolving]
  - Neck pain [Unknown]
  - Skin discomfort [Recovering/Resolving]

NARRATIVE: CASE EVENT DATE: 2009
